FAERS Safety Report 9392131 (Version 1)
Quarter: 2013Q3

REPORT INFORMATION
  Report Type: Spontaneous
  Country: US (occurrence: US)
  Receive Date: 20130709
  Receipt Date: 20130709
  Transmission Date: 20140515
  Serious: Yes (Disabling, Other)
  Sender: FDA-Public Use
  Company Number: US-RB-055683-13

PATIENT
  Sex: Female

DRUGS (4)
  1. SUBUTEX [Suspect]
     Indication: DRUG DEPENDENCE
     Dosage: DOSING DETAILS UNNKOWN
     Route: 064
     Dates: end: 2008
  2. CRACK COCAINE [Suspect]
     Indication: DRUG ABUSE
     Dosage: DOSING DETAILS UNKNOWN
     Route: 064
  3. PCP [Suspect]
     Indication: DRUG ABUSE
     Dosage: DOSING DETAILS UNKNOWN
     Route: 064
  4. MARIJUANA [Suspect]
     Indication: DRUG ABUSE
     Dosage: DOSING DETAILS UNKNOWN
     Route: 064

REACTIONS (2)
  - Foetal exposure during pregnancy [Recovered/Resolved]
  - Developmental delay [Not Recovered/Not Resolved]
